FAERS Safety Report 6342410-1 (Version None)
Quarter: 2009Q3

REPORT INFORMATION
  Report Type: 
  Country: None (occurrence: None)
  Receive Date: 20090908
  Receipt Date: 20090831
  Transmission Date: 20100115
  Serious: Yes (Hospitalization)
  Sender: FDA-Public Use
  Company Number: US-ELI_LILLY_AND_COMPANY-US200909000267

PATIENT

DRUGS (3)
  1. EXENATIDE [Suspect]
     Indication: TYPE 2 DIABETES MELLITUS
  2. ACE INHIBITOR NOS [Concomitant]
  3. INSULIN [Concomitant]

REACTIONS (2)
  - OFF LABEL USE [None]
  - PANCREATITIS [None]
